FAERS Safety Report 6150009-5 (Version None)
Quarter: 2009Q2

REPORT INFORMATION
  Report Type: 
  Country: None (occurrence: None)
  Receive Date: 20090409
  Receipt Date: 20090403
  Transmission Date: 20091009
  Serious: No
  Sender: FDA-Public Use
  Company Number: B0566943A

PATIENT
  Sex: Female

DRUGS (3)
  1. SERETIDE [Suspect]
     Indication: ASTHMA
     Dosage: 250MCG TWICE PER DAY
     Route: 055
     Dates: start: 20090323, end: 20090324
  2. HUSCODE [Concomitant]
     Route: 048
  3. FLAVERIC [Concomitant]
     Indication: COUGH
     Route: 048

REACTIONS (4)
  - ASTHENIA [None]
  - HYPOAESTHESIA [None]
  - OEDEMA [None]
  - PERIPHERAL COLDNESS [None]
